FAERS Safety Report 24696495 (Version 5)
Quarter: 2025Q1

REPORT INFORMATION
  Report Type: Report from Study
  Country: CA (occurrence: CA)
  Receive Date: 20241204
  Receipt Date: 20250107
  Transmission Date: 20250409
  Serious: Yes (Other)
  Sender: JOHNSON AND JOHNSON
  Company Number: CA-JNJFOC-20241063510

PATIENT
  Age: 66 Year
  Sex: Male

DRUGS (19)
  1. BOSENTAN [Suspect]
     Active Substance: BOSENTAN
     Indication: Pulmonary arterial hypertension
     Route: 048
     Dates: start: 20240405
  2. SELEXIPAG [Suspect]
     Active Substance: SELEXIPAG
     Indication: Pulmonary arterial hypertension
     Route: 048
     Dates: start: 20241028
  3. SELEXIPAG [Suspect]
     Active Substance: SELEXIPAG
     Route: 048
  4. SELEXIPAG [Suspect]
     Active Substance: SELEXIPAG
     Route: 048
  5. SELEXIPAG [Suspect]
     Active Substance: SELEXIPAG
     Route: 048
  6. ADCIRCA [Concomitant]
     Active Substance: TADALAFIL
  7. TAMSULOSIN [Concomitant]
     Active Substance: TAMSULOSIN
  8. ATORVASTATIN [Concomitant]
     Active Substance: ATORVASTATIN
  9. BISOPROLOL [Concomitant]
     Active Substance: BISOPROLOL
  10. PANTOPRAZOLE [Concomitant]
     Active Substance: PANTOPRAZOLE
  11. METFORMIN [Concomitant]
     Active Substance: METFORMIN HYDROCHLORIDE
  12. CANDESARTAN [Concomitant]
     Active Substance: CANDESARTAN
  13. TRESIBA [Concomitant]
     Active Substance: INSULIN DEGLUDEC
  14. INSULIN LISPRO [Concomitant]
     Active Substance: INSULIN LISPRO
  15. DAPAGLIFLOZIN [Concomitant]
     Active Substance: DAPAGLIFLOZIN
  16. LINAGLIPTIN [Concomitant]
     Active Substance: LINAGLIPTIN
  17. FUROSEMIDE [Concomitant]
     Active Substance: FUROSEMIDE
  18. ASPIRIN [Concomitant]
     Active Substance: ASPIRIN
  19. SPIRONOLACTONE [Concomitant]
     Active Substance: SPIRONOLACTONE

REACTIONS (14)
  - Arthralgia [Not Recovered/Not Resolved]
  - Headache [Not Recovered/Not Resolved]
  - Pain [Not Recovered/Not Resolved]
  - Pain in extremity [Not Recovered/Not Resolved]
  - Back pain [Not Recovered/Not Resolved]
  - Pain in jaw [Not Recovered/Not Resolved]
  - Eye pain [Not Recovered/Not Resolved]
  - Bone pain [Not Recovered/Not Resolved]
  - Influenza [Recovering/Resolving]
  - Diarrhoea [Recovered/Resolved]
  - Rash pruritic [Not Recovered/Not Resolved]
  - Malaise [Recovering/Resolving]
  - Myalgia [Not Recovered/Not Resolved]
  - Insomnia [Unknown]
